FAERS Safety Report 24402281 (Version 1)
Quarter: 2024Q4

REPORT INFORMATION
  Report Type: Spontaneous
  Country: GB (occurrence: GB)
  Receive Date: 20241007
  Receipt Date: 20241007
  Transmission Date: 20250115
  Serious: Yes (Hospitalization)
  Sender: CELLTRION
  Company Number: GB-CELLTRION INC.-2024GB016148

PATIENT

DRUGS (2)
  1. YUFLYMA [Suspect]
     Active Substance: ADALIMUMAB-AATY
     Indication: Psoriatic arthropathy
     Dosage: 40 MG PEN
     Route: 058
     Dates: start: 202310
  2. YUFLYMA [Suspect]
     Active Substance: ADALIMUMAB-AATY
     Dosage: 40 MG PEN
     Route: 058
     Dates: start: 202312, end: 202406

REACTIONS (4)
  - Hip fracture [Recovering/Resolving]
  - Biopsy [Recovering/Resolving]
  - Influenza [Unknown]
  - Intentional dose omission [Unknown]
